FAERS Safety Report 5938769-7 (Version None)
Quarter: 2008Q4

REPORT INFORMATION
  Report Type: 
  Country: None (occurrence: None)
  Receive Date: 20081103
  Receipt Date: 20081029
  Transmission Date: 20090506
  Serious: Yes (Hospitalization, Other)
  Sender: FDA-Public Use
  Company Number: US-BAYER-200829336NA

PATIENT
  Age: 32 Year
  Sex: Female
  Weight: 63 kg

DRUGS (1)
  1. MIRENA [Suspect]
     Indication: CONTRACEPTION
     Route: 015
     Dates: start: 20070426, end: 20080725

REACTIONS (4)
  - ABORTION SPONTANEOUS [None]
  - COMPLICATION OF DEVICE REMOVAL [None]
  - IUD MIGRATION [None]
  - PREGNANCY WITH CONTRACEPTIVE DEVICE [None]
